FAERS Safety Report 5206587-3 (Version None)
Quarter: 2007Q1

REPORT INFORMATION
  Report Type: 
  Country: None (occurrence: None)
  Receive Date: 20070109
  Receipt Date: 20061227
  Transmission Date: 20070707
  Serious: Yes (Hospitalization, Other)
  Sender: FDA-Public Use
  Company Number: 2006BI008682

PATIENT
  Age: 36 Year
  Sex: Female
  Weight: 38.5557 kg

DRUGS (1)
  1. AVONEX [Suspect]
     Indication: MULTIPLE SCLEROSIS
     Dosage: IM
     Route: 030
     Dates: start: 19961001, end: 20060501

REACTIONS (24)
  - ABDOMINAL DISTENSION [None]
  - AMENORRHOEA [None]
  - ANOREXIA [None]
  - ASTHENIA [None]
  - CONVULSION [None]
  - COORDINATION ABNORMAL [None]
  - DEPRESSION [None]
  - EYELID FUNCTION DISORDER [None]
  - FALL [None]
  - GAIT DISTURBANCE [None]
  - HEPATIC FAILURE [None]
  - HEPATOMEGALY [None]
  - KIDNEY ENLARGEMENT [None]
  - LOSS OF CONSCIOUSNESS [None]
  - MEMORY IMPAIRMENT [None]
  - MIGRAINE [None]
  - MULTIPLE SCLEROSIS RELAPSE [None]
  - ORAL INTAKE REDUCED [None]
  - PAIN IN EXTREMITY [None]
  - PANIC ATTACK [None]
  - RENAL FAILURE [None]
  - STRESS [None]
  - SYNCOPE [None]
  - THINKING ABNORMAL [None]
